FAERS Safety Report 19897112 (Version 1)
Quarter: 2021Q3

REPORT INFORMATION
  Report Type: Spontaneous
  Country: US (occurrence: US)
  Receive Date: 20210930
  Receipt Date: 20210930
  Transmission Date: 20211014
  Serious: No
  Sender: FDA-Public Use
  Company Number: US-AUROBINDO-AUR-APL-2020-050912

PATIENT
  Sex: Female

DRUGS (3)
  1. METFORMIN [Concomitant]
     Active Substance: METFORMIN HYDROCHLORIDE
     Indication: PRODUCT USED FOR UNKNOWN INDICATION
     Dosage: UNK
     Route: 065
  2. LEVOTHYROXINE. [Concomitant]
     Active Substance: LEVOTHYROXINE
     Indication: PRODUCT USED FOR UNKNOWN INDICATION
     Dosage: UNK
     Route: 065
  3. SUMATRIPTAN TABLETS 50MG [Suspect]
     Active Substance: SUMATRIPTAN
     Indication: MIGRAINE
     Dosage: 50 MILLIGRAM, AS NEEDED
     Route: 048
     Dates: start: 20200106

REACTIONS (6)
  - Asthenia [Recovered/Resolved]
  - Drug ineffective [Unknown]
  - Malaise [Recovered/Resolved]
  - Lethargy [Recovered/Resolved]
  - Fatigue [Recovered/Resolved]
  - Feeling abnormal [Recovered/Resolved]

NARRATIVE: CASE EVENT DATE: 202009
